FAERS Safety Report 4715669-1 (Version None)
Quarter: 2005Q3

REPORT INFORMATION
  Report Type: 
  Country: None (occurrence: None)
  Receive Date: 20050715
  Receipt Date: 20050715
  Transmission Date: 20060218
  Serious: Yes (Hospitalization)
  Sender: FDA-Public Use
  Company Number: None

PATIENT
  Age: 81 Year
  Sex: Male
  Weight: 87.9978 kg

DRUGS (8)
  1. WARFARIN 5 MG [Suspect]
     Indication: AORTIC VALVE REPLACEMENT
     Dosage: 25 MG /5 MG TU+FR/ROW ORAL
     Route: 048
     Dates: start: 19910101, end: 20050714
  2. WARFARIN 5 MG [Suspect]
     Indication: ATRIAL FIBRILLATION
     Dosage: 25 MG /5 MG TU+FR/ROW ORAL
     Route: 048
     Dates: start: 19910101, end: 20050714
  3. ROSIGLITAZONE [Concomitant]
  4. DOXAZOSIN [Concomitant]
  5. DOCUSATE [Concomitant]
  6. AMITRIPTYLINE HCL [Concomitant]
  7. GLIPIZIDE [Concomitant]
  8. LISINOPRIL [Concomitant]

REACTIONS (1)
  - CEREBROVASCULAR ACCIDENT [None]
